FAERS Safety Report 10968371 (Version 5)
Quarter: 2015Q4

REPORT INFORMATION
  Report Type: Spontaneous
  Country: US (occurrence: US)
  Receive Date: 20150330
  Receipt Date: 20151010
  Transmission Date: 20160304
  Serious: Yes (Death, Life-Threatening, Hospitalization, Other)
  Sender: FDA-Public Use
  Company Number: PHHY2015US034412

PATIENT
  Age: 61 Year
  Sex: Male
  Weight: 90 kg

DRUGS (9)
  1. BACLOFEN INTRATHECAL [Suspect]
     Active Substance: BACLOFEN
     Indication: MUSCLE SPASTICITY
     Dosage: 870.3 MCG PER DAY
     Route: 037
  2. AMBIEN [Suspect]
     Active Substance: ZOLPIDEM TARTRATE
     Indication: PRODUCT USED FOR UNKNOWN INDICATION
     Route: 065
  3. COLACE [Suspect]
     Active Substance: DOCUSATE SODIUM
     Indication: PRODUCT USED FOR UNKNOWN INDICATION
     Route: 065
  4. MORPHINE [Suspect]
     Active Substance: MORPHINE
     Indication: PRODUCT USED FOR UNKNOWN INDICATION
     Route: 065
  5. TEMAZEPAM. [Suspect]
     Active Substance: TEMAZEPAM
     Indication: PRODUCT USED FOR UNKNOWN INDICATION
     Route: 065
  6. SOMA [Suspect]
     Active Substance: CARISOPRODOL
     Indication: PRODUCT USED FOR UNKNOWN INDICATION
     Route: 065
  7. NORVASC [Suspect]
     Active Substance: AMLODIPINE BESYLATE
     Indication: PRODUCT USED FOR UNKNOWN INDICATION
     Route: 065
  8. ALBUTEROL. [Suspect]
     Active Substance: ALBUTEROL
     Indication: PRODUCT USED FOR UNKNOWN INDICATION
     Route: 065
  9. OXYCODONE [Suspect]
     Active Substance: OXYCODONE
     Indication: PRODUCT USED FOR UNKNOWN INDICATION
     Route: 065

REACTIONS (25)
  - Cardio-respiratory arrest [Fatal]
  - Lactic acidosis [Unknown]
  - Respiratory failure [Unknown]
  - Pseudomembranous colitis [Unknown]
  - Brain death [Unknown]
  - Cardiac arrest [Unknown]
  - Brain injury [Unknown]
  - Septic shock [Unknown]
  - Pneumonia [Unknown]
  - Hepatic enzyme increased [Unknown]
  - Loss of consciousness [Unknown]
  - Pancreatitis chronic [Unknown]
  - Hypoxic-ischaemic encephalopathy [Fatal]
  - Hyperkalaemia [Unknown]
  - Emphysema [Unknown]
  - Nephrosclerosis [Unknown]
  - Left ventricular hypertrophy [Unknown]
  - Scar [Unknown]
  - Gun shot wound [Fatal]
  - Decubitus ulcer [Unknown]
  - Aortic arteriosclerosis [Unknown]
  - Hypertensive heart disease [Unknown]
  - Lung disorder [Unknown]
  - Bradycardia [Unknown]
  - Cardiomegaly [Unknown]

NARRATIVE: CASE EVENT DATE: 20150119
